FAERS Safety Report 5317823-7 (Version None)
Quarter: 2007Q2

REPORT INFORMATION
  Report Type: 
  Country: None (occurrence: None)
  Receive Date: 20070502
  Receipt Date: 20070502
  Transmission Date: 20071010
  Serious: Yes (Hospitalization)
  Sender: FDA-Public Use
  Company Number: None

PATIENT
  Sex: Female
  Weight: 68 kg

DRUGS (8)
  1. AVASTIN [Suspect]
     Indication: INFLAMMATORY CARCINOMA OF THE BREAST
     Dosage: 10 MG/KG (670MG) EVERY 2WKS IV
     Route: 042
     Dates: start: 20061226, end: 20070201
  2. FLUOROURACIL [Concomitant]
  3. EPIRUBUICIN [Concomitant]
  4. CYTOXAN [Concomitant]
  5. TAXOL [Concomitant]
  6. GEMZAR [Concomitant]
  7. CARBOPLATIN [Concomitant]
  8. AVASTIN [Concomitant]

REACTIONS (3)
  - DIPLOPIA [None]
  - HEADACHE [None]
  - PAPILLOEDEMA [None]
